FAERS Safety Report 15306655 (Version 2)
Quarter: 2018Q4

REPORT INFORMATION
  Report Type: Spontaneous
  Country: US (occurrence: US)
  Receive Date: 20180822
  Receipt Date: 20181009
  Transmission Date: 20190204
  Serious: Yes (Hospitalization, Other)
  Sender: FDA-Public Use
  Company Number: US-GLAXOSMITHKLINE-US2018148624

PATIENT
  Age: 61 Year
  Sex: Male

DRUGS (3)
  1. ADVAIR DISKUS [Suspect]
     Active Substance: FLUTICASONE PROPIONATE\SALMETEROL XINAFOATE
     Dosage: 1 PUFF(S), BID (250/50)
     Route: 055
     Dates: start: 2017
  2. VENTOLIN HFA [Suspect]
     Active Substance: ALBUTEROL SULFATE
     Indication: CHRONIC OBSTRUCTIVE PULMONARY DISEASE
     Dosage: 2 PUFF(S), PRN
     Route: 055
     Dates: start: 1988
  3. ADVAIR DISKUS [Suspect]
     Active Substance: FLUTICASONE PROPIONATE\SALMETEROL XINAFOATE
     Indication: CHRONIC OBSTRUCTIVE PULMONARY DISEASE
     Dosage: UNK (500/50)
     Route: 055
     Dates: start: 2014

REACTIONS (10)
  - Cerebrovascular accident [Recovering/Resolving]
  - Hypoaesthesia [Not Recovered/Not Resolved]
  - Facial paralysis [Recovering/Resolving]
  - Headache [Recovering/Resolving]
  - Hand deformity [Recovered/Resolved]
  - Off label use [Recovered/Resolved]
  - Fatigue [Unknown]
  - Arterial therapeutic procedure [Recovered/Resolved]
  - Visual impairment [Recovering/Resolving]
  - Speech disorder [Recovering/Resolving]

NARRATIVE: CASE EVENT DATE: 2014
